FAERS Safety Report 7503727-8 (Version None)
Quarter: 2011Q2

REPORT INFORMATION
  Report Type: 
  Country: None (occurrence: None)
  Receive Date: 20110525
  Receipt Date: 20110520
  Transmission Date: 20111010
  Serious: Yes (Other)
  Sender: FDA-Public Use
  Company Number: US-PFIZER INC-2011110663

PATIENT
  Sex: Female
  Weight: 48.98 kg

DRUGS (3)
  1. ADVIL LIQUI-GELS [Suspect]
     Indication: TOOTHACHE
     Dosage: 400 MG, DAILY
     Route: 048
     Dates: start: 20110520
  2. ADVIL LIQUI-GELS [Suspect]
     Indication: PAIN
  3. PENICILLIN G BENZATHINE AND PENICILLIN G PROCAINE [Concomitant]
     Indication: TOOTHACHE
     Dosage: UNK

REACTIONS (3)
  - THROAT TIGHTNESS [None]
  - ANXIETY [None]
  - HYPERSENSITIVITY [None]
